FAERS Safety Report 6555761-2 (Version None)
Quarter: 2010Q1

REPORT INFORMATION
  Report Type: 
  Country: None (occurrence: None)
  Receive Date: 20100128
  Receipt Date: 20100118
  Transmission Date: 20100710
  Serious: Yes (Other)
  Sender: FDA-Public Use
  Company Number: US-JNJCH-2010002274

PATIENT
  Age: 48 Year
  Sex: Female
  Weight: 39.9 kg

DRUGS (3)
  1. ROLAIDS [Suspect]
     Indication: GASTROOESOPHAGEAL REFLUX DISEASE
     Dosage: TEXT:TWO TABLETS AFTER DINNER AND BEFORE BED
     Route: 048
  2. SYNTHROID [Concomitant]
     Indication: HYPOTHYROIDISM
     Dosage: TEXT:.075MG
     Route: 048
  3. ALL OTHER THERAPEUTIC PRODUCTS [Concomitant]
     Indication: VERTIGO
     Dosage: TEXT:2MG PRN
     Route: 048

REACTIONS (2)
  - IRRITABLE BOWEL SYNDROME [None]
  - OFF LABEL USE [None]
